FAERS Safety Report 14565569 (Version 1)
Quarter: 2018Q1

REPORT INFORMATION
  Report Type: Report from Study
  Country: None (occurrence: BR)
  Receive Date: 20180223
  Receipt Date: 20180223
  Transmission Date: 20180509
  Serious: Yes (Hospitalization, Other)
  Sender: FDA-Public Use
  Company Number: BR-ABBVIE-18K-020-2260765-00

PATIENT
  Age: 67 Year
  Sex: Female
  Weight: 55 kg

DRUGS (2)
  1. DIPYRON (METAMIZOLE SODIUM\THEOPHYLLINE NICOTINATE) [Suspect]
     Active Substance: METAMIZOLE SODIUM
     Indication: PRODUCT USED FOR UNKNOWN INDICATION
     Route: 065
     Dates: start: 201710
  2. HUMIRA [Suspect]
     Active Substance: ADALIMUMAB
     Indication: RHEUMATOID ARTHRITIS
     Route: 058
     Dates: start: 20110101, end: 20180130

REACTIONS (12)
  - Pyrexia [Recovered/Resolved]
  - Uterine prolapse [Recovered/Resolved]
  - Blood pressure decreased [Recovered/Resolved]
  - Labyrinthitis [Recovered/Resolved]
  - Uterine rupture [Recovered/Resolved]
  - Asthenia [Recovered/Resolved]
  - Vomiting [Recovered/Resolved]
  - Bladder prolapse [Recovered/Resolved]
  - Procedural nausea [Recovered/Resolved]
  - Syncope [Recovered/Resolved]
  - Post procedural complication [Recovered/Resolved]
  - Hospitalisation [Recovered/Resolved]

NARRATIVE: CASE EVENT DATE: 201608
